FAERS Safety Report 9465322 (Version 1)
Quarter: 2013Q3

REPORT INFORMATION
  Report Type: Spontaneous
  Country: US (occurrence: US)
  Receive Date: 20130820
  Receipt Date: 20130820
  Transmission Date: 20140515
  Serious: Yes (Other)
  Sender: FDA-Public Use
  Company Number: US-AMGEN-USASP2013057155

PATIENT
  Age: 60 Year
  Sex: Male

DRUGS (1)
  1. NPLATE [Suspect]
     Indication: IMMUNE THROMBOCYTOPENIC PURPURA
     Dosage: 6 UNK, UNK
     Route: 065

REACTIONS (2)
  - Pulmonary thrombosis [Unknown]
  - Thrombosis [Unknown]
